FAERS Safety Report 9360068 (Version 1)
Quarter: 2013Q2

REPORT INFORMATION
  Report Type: Spontaneous
  Country: US (occurrence: US)
  Receive Date: 20130621
  Receipt Date: 20130621
  Transmission Date: 20140414
  Serious: No
  Sender: FDA-Public Use
  Company Number: US-PFIZER INC-2013185257

PATIENT
  Age: 76 Year
  Sex: 0

DRUGS (8)
  1. NEURONTIN [Suspect]
     Dosage: UNK
  2. TETRACYCLINE HCL [Suspect]
     Dosage: UNK
  3. DOXYCYCLINE HYCLATE [Suspect]
     Dosage: UNK
  4. KEFLEX [Suspect]
     Dosage: UNK
  5. IODINE [Suspect]
     Dosage: UNK
  6. CODEINE [Suspect]
     Dosage: UNK
  7. AUGMENTIN [Suspect]
     Dosage: UNK
  8. ALLEGRA [Suspect]
     Dosage: UNK

REACTIONS (1)
  - Drug hypersensitivity [Unknown]
